FAERS Safety Report 5614789-7 (Version None)
Quarter: 2008Q1

REPORT INFORMATION
  Report Type: 
  Country: None (occurrence: None)
  Receive Date: 20080111
  Receipt Date: 20071029
  Transmission Date: 20080703
  Serious: Yes (Hospitalization)
  Sender: FDA-Public Use
  Company Number: US-WYE-H00957307

PATIENT
  Age: 55 Year
  Sex: Female
  Weight: 49.94 kg

DRUGS (1)
  1. PREMPRO [Suspect]
     Indication: HORMONE THERAPY
     Dosage: 0.625MG/5MG; FREQUENCY NOT PROVIDED, ORAL
     Route: 048
     Dates: start: 20020101, end: 20030101

REACTIONS (1)
  - VAGINAL HAEMORRHAGE [None]
